FAERS Safety Report 24986128 (Version 2)
Quarter: 2025Q3

REPORT INFORMATION
  Report Type: Report from Study
  Country: US (occurrence: None)
  Receive Date: 20250219
  Receipt Date: 20250816
  Transmission Date: 20251021
  Serious: Yes (Hospitalization, Disabling, Other)
  Sender: ALEXION PHARMACEUTICALS
  Company Number: US-AstraZeneca-2015SE34153

PATIENT
  Age: 64 Year
  Sex: Male
  Weight: 77.111 kg

DRUGS (34)
  1. NEXIUM [Suspect]
     Active Substance: ESOMEPRAZOLE MAGNESIUM
     Indication: Gastrooesophageal reflux disease
     Dosage: 40 MILLIGRAM, QD
     Dates: start: 2014
  2. NEXIUM [Suspect]
     Active Substance: ESOMEPRAZOLE MAGNESIUM
     Indication: Oesophageal spasm
  3. PRILOSEC [Suspect]
     Active Substance: OMEPRAZOLE MAGNESIUM
     Indication: Gastrooesophageal reflux disease
     Dates: start: 2013, end: 2014
  4. PRILOSEC [Suspect]
     Active Substance: OMEPRAZOLE MAGNESIUM
     Indication: Oesophageal spasm
  5. CRESTOR [Suspect]
     Active Substance: ROSUVASTATIN CALCIUM
     Indication: Blood cholesterol
     Dosage: 40 MILLIGRAM, QD
     Dates: start: 2013
  6. PLAVIX [Concomitant]
     Active Substance: CLOPIDOGREL BISULFATE
     Indication: Angioplasty
     Dosage: 75 MILLIGRAM, QD
     Dates: start: 2008
  7. JANUVIA [Concomitant]
     Active Substance: SITAGLIPTIN PHOSPHATE
     Indication: Diabetes mellitus
     Dosage: 100 MILLIGRAM, QD
  8. METFORMIN HYDROCHLORIDE [Concomitant]
     Active Substance: METFORMIN HYDROCHLORIDE
     Indication: Diabetes mellitus
     Dosage: 500 MILLIGRAM, BID
  9. ASPIRIN [Concomitant]
     Active Substance: ASPIRIN
     Dosage: 81 MILLIGRAM, QD
  10. LOSARTAN POTASSIUM [Concomitant]
     Active Substance: LOSARTAN POTASSIUM
     Indication: Renal disorder
     Dosage: 25 MILLIGRAM, QD
     Dates: start: 2014
  11. RAPAFLO [Concomitant]
     Active Substance: SILODOSIN
     Indication: Nephrolithiasis
     Dosage: 8 MILLIGRAM, QD
  12. ZOFRAN [Concomitant]
     Active Substance: ONDANSETRON HYDROCHLORIDE
     Indication: Oesophageal spasm
  13. ZOFRAN [Concomitant]
     Active Substance: ONDANSETRON HYDROCHLORIDE
     Indication: Nausea
  14. ZETIA [Concomitant]
     Active Substance: EZETIMIBE
     Indication: Blood cholesterol
  15. ISOSORBIDE [Concomitant]
     Active Substance: ISOSORBIDE
     Indication: Angina pectoris
  16. LOPRESSOR [Concomitant]
     Active Substance: METOPROLOL TARTRATE
     Indication: Blood pressure measurement
     Dosage: 50 MILLIGRAM, BID
  17. TRAMADOL [Concomitant]
     Active Substance: TRAMADOL
     Indication: Chest pain
  18. TRAMADOL [Concomitant]
     Active Substance: TRAMADOL
     Indication: Arthritis
  19. AZELASTINE [Concomitant]
     Active Substance: AZELASTINE
  20. BUTALBITAL, ACETAMINOPHEN, AND CAFFEINE [Concomitant]
     Active Substance: ACETAMINOPHEN\BUTALBITAL\CAFFEINE
  21. CELEXA [Concomitant]
     Active Substance: CITALOPRAM HYDROBROMIDE
     Dosage: 40 MILLIGRAM, QD
     Dates: start: 201409
  22. DIAZEPAM [Concomitant]
     Active Substance: DIAZEPAM
     Dosage: 5 MILLIGRAM, BID
  23. IMDUR [Concomitant]
     Active Substance: ISOSORBIDE MONONITRATE
     Dosage: 30 MILLIGRAM, QD
  24. IMDUR [Concomitant]
     Active Substance: ISOSORBIDE MONONITRATE
     Dosage: 60 MILLIGRAM, QD
  25. TRAMADOL HYDROCHLORIDE [Concomitant]
     Active Substance: TRAMADOL HYDROCHLORIDE
  26. NITROLINGUAL [Concomitant]
     Active Substance: NITROGLYCERIN
  27. True test [Concomitant]
  28. TIZANIDINE HYDROCHLORIDE [Concomitant]
     Active Substance: TIZANIDINE HYDROCHLORIDE
  29. ADVAIR HFA [Concomitant]
     Active Substance: FLUTICASONE PROPIONATE\SALMETEROL XINAFOATE
  30. XANAX [Concomitant]
     Active Substance: ALPRAZOLAM
     Dosage: 2 DOSAGE FORM, TID
  31. FLONASE [Concomitant]
     Active Substance: FLUTICASONE PROPIONATE
  32. OXYCODONE HYDROCHLORIDE [Concomitant]
     Active Substance: OXYCODONE HYDROCHLORIDE
     Indication: Pain
  33. WELLBUTRIN XL [Concomitant]
     Active Substance: BUPROPION HYDROCHLORIDE
  34. METOPROLOL [Concomitant]
     Active Substance: METOPROLOL
     Dosage: 50 MILLIGRAM, BID

REACTIONS (28)
  - Cerebrovascular accident [Unknown]
  - Blindness [Recovering/Resolving]
  - Deafness [Recovering/Resolving]
  - Cognitive disorder [Unknown]
  - Pneumonia [Unknown]
  - Coronary artery disease [Unknown]
  - Procedural haemorrhage [Unknown]
  - Visual field defect [Unknown]
  - Dizziness [Unknown]
  - Muscular weakness [Unknown]
  - Nausea [Unknown]
  - Depression [Unknown]
  - Cerebral disorder [Unknown]
  - Therapeutic response unexpected [Unknown]
  - Disturbance in attention [Unknown]
  - Decreased appetite [Unknown]
  - Weight increased [Unknown]
  - Anxiety [Unknown]
  - Dysphoria [Unknown]
  - Chest pain [Unknown]
  - Back pain [Unknown]
  - Cervical radiculopathy [Unknown]
  - Sinusitis [Unknown]
  - Middle insomnia [Unknown]
  - Oesophageal candidiasis [Unknown]
  - Alopecia [Unknown]
  - Product use in unapproved indication [Unknown]
  - Drug ineffective [Unknown]

NARRATIVE: CASE EVENT DATE: 20140101
